FAERS Safety Report 24899875 (Version 1)
Quarter: 2025Q1

REPORT INFORMATION
  Report Type: Spontaneous
  Country: FR (occurrence: FR)
  Receive Date: 20250129
  Receipt Date: 20250129
  Transmission Date: 20250409
  Serious: Yes (Other)
  Sender: SANOFI AVENTIS
  Company Number: FR-SA-SAC20240718000822

PATIENT
  Sex: Female

DRUGS (2)
  1. DUPIXENT [Suspect]
     Active Substance: DUPILUMAB
     Indication: Neurodermatitis
     Dosage: UNK UNK, BIM
     Route: 058
  2. LOCOID [Concomitant]
     Active Substance: HYDROCORTISONE BUTYRATE

REACTIONS (2)
  - Immunodeficiency [Not Recovered/Not Resolved]
  - Drug ineffective [Unknown]
